FAERS Safety Report 25654354 (Version 1)
Quarter: 2025Q3

REPORT INFORMATION
  Report Type: Report from Study
  Country: EU (occurrence: EU)
  Receive Date: 20250807
  Receipt Date: 20250807
  Transmission Date: 20251021
  Serious: Yes (Other)
  Sender: JOHNSON AND JOHNSON
  Company Number: None

PATIENT
  Age: 66 Year
  Sex: Female

DRUGS (1)
  1. SIMPONI [Suspect]
     Active Substance: GOLIMUMAB
     Indication: Uveitis
     Route: 058
     Dates: start: 20170605, end: 20220619

REACTIONS (1)
  - Septic arthritis streptococcal [Not Recovered/Not Resolved]

NARRATIVE: CASE EVENT DATE: 20220619
